FAERS Safety Report 26130828 (Version 1)
Quarter: 2025Q4

REPORT INFORMATION
  Report Type: Spontaneous
  Country: US (occurrence: None)
  Receive Date: 20251208
  Receipt Date: 20251208
  Transmission Date: 20260117
  Serious: Yes (Life-Threatening, Hospitalization)
  Sender: FDA-CTU
  Company Number: None

PATIENT
  Age: 57 Year
  Sex: Male
  Weight: 128 kg

DRUGS (1)
  1. EMPAGLIFLOZIN [Suspect]
     Active Substance: EMPAGLIFLOZIN
     Indication: Diabetes mellitus
     Dosage: 12.5 MG AM PO ?
     Route: 048
     Dates: start: 20240819, end: 20251004

REACTIONS (7)
  - Fatigue [None]
  - Urinary tract infection [None]
  - Vomiting [None]
  - Candida infection [None]
  - Dizziness [None]
  - Urinary tract infection fungal [None]
  - Infection in an immunocompromised host [None]

NARRATIVE: CASE EVENT DATE: 20250919
